FAERS Safety Report 21739805 (Version 1)
Quarter: 2022Q4

REPORT INFORMATION
  Report Type: Report from Study
  Country: US (occurrence: US)
  Receive Date: 20221216
  Receipt Date: 20221216
  Transmission Date: 20230113
  Serious: Yes (Other)
  Sender: FDA-Public Use
  Company Number: US-JNJFOC-20221220207

PATIENT
  Sex: Female

DRUGS (1)
  1. STELARA [Suspect]
     Active Substance: USTEKINUMAB
     Indication: Crohn^s disease
     Route: 040
     Dates: start: 20220901

REACTIONS (3)
  - Blood pressure systolic increased [Recovered/Resolved]
  - Blood pressure diastolic decreased [Recovered/Resolved]
  - Insomnia [Recovered/Resolved]
